FAERS Safety Report 25140115 (Version 1)
Quarter: 2025Q1

REPORT INFORMATION
  Report Type: Spontaneous
  Country: FR (occurrence: FR)
  Receive Date: 20250331
  Receipt Date: 20250331
  Transmission Date: 20250408
  Serious: Yes (Hospitalization)
  Sender: MYLAN
  Company Number: None

PATIENT
  Age: 75 Year
  Sex: Male

DRUGS (2)
  1. ARIXTRA [Suspect]
     Active Substance: FONDAPARINUX SODIUM
     Indication: Deep vein thrombosis
  2. CIPROFLOXACIN [Concomitant]
     Active Substance: CIPROFLOXACIN
     Indication: Erysipelas
     Dosage: 1 DOSAGE FORM, BID
     Dates: start: 20250218

REACTIONS (1)
  - Bullous haemorrhagic dermatosis [Not Recovered/Not Resolved]

NARRATIVE: CASE EVENT DATE: 20250225
